FAERS Safety Report 9503093 (Version 1)
Quarter: 2013Q3

REPORT INFORMATION
  Report Type: Spontaneous
  Country: DE (occurrence: DE)
  Receive Date: 20130906
  Receipt Date: 20130906
  Transmission Date: 20140515
  Serious: Yes (Hospitalization)
  Sender: FDA-Public Use
  Company Number: DE-EISAI INC-E2007-01308-SPO-DE

PATIENT
  Age: 25 Year
  Sex: Female

DRUGS (5)
  1. FYCOMPA (PERAMPANEL) [Suspect]
     Indication: EPILEPSY
     Route: 048
     Dates: start: 20130627, end: 20130811
  2. FYCOMPA (PERAMPANEL) [Suspect]
     Route: 048
     Dates: start: 201308, end: 201308
  3. FYCOMPA (PERAMPANEL) [Suspect]
     Route: 048
     Dates: start: 201308, end: 201308
  4. OXCARBAZEPIN [Concomitant]
     Indication: EPILEPSY
     Route: 048
  5. VALPROIC ACID [Concomitant]
     Indication: EPILEPSY
     Route: 048

REACTIONS (1)
  - Emotional disorder [Recovered/Resolved]
